FAERS Safety Report 8942042 (Version 1)
Quarter: 2012Q4

REPORT INFORMATION
  Report Type: 
  Country: IT (occurrence: IT)
  Receive Date: 20121203
  Receipt Date: 20121203
  Transmission Date: 20130627
  Serious: Yes (Other)
  Sender: FDA-Public Use
  Company Number: IT-MYLANLABS-2012S1024046

PATIENT
  Age: 74 Year
  Sex: Male

DRUGS (1)
  1. CLOPIDOGREL MYLAN [Suspect]
     Indication: AORTIC STENT INSERTION
     Route: 048

REACTIONS (1)
  - Angina pectoris [Recovered/Resolved]
